FAERS Safety Report 24628987 (Version 1)
Quarter: 2024Q4

REPORT INFORMATION
  Report Type: Spontaneous
  Country: US (occurrence: US)
  Receive Date: 20241118
  Receipt Date: 20241118
  Transmission Date: 20250115
  Serious: No
  Sender: AUROBINDO
  Company Number: US-AUROBINDO-AUR-APL-2024-019714

PATIENT
  Sex: Female

DRUGS (2)
  1. CLONAZEPAM [Suspect]
     Active Substance: CLONAZEPAM
     Indication: Panic attack
     Dosage: 0.5 MILLIGRAM 0.5 MG, 2X/DAY)
     Route: 065
  2. CLONAZEPAM [Suspect]
     Active Substance: CLONAZEPAM
     Indication: Staring

REACTIONS (9)
  - Tremor [Unknown]
  - Crying [Unknown]
  - Brain fog [Unknown]
  - Hypertension [Unknown]
  - Panic attack [Unknown]
  - Aphasia [Unknown]
  - Impaired work ability [Unknown]
  - Product formulation issue [Unknown]
  - Product substitution issue [Unknown]
